FAERS Safety Report 18749979 (Version 1)
Quarter: 2021Q1

REPORT INFORMATION
  Report Type: Spontaneous
  Country: US (occurrence: US)
  Receive Date: 20210118
  Receipt Date: 20210118
  Transmission Date: 20210419
  Serious: Yes (Hospitalization, Other)
  Sender: FDA-Public Use
  Company Number: US-APOTEX-2021AP001088

PATIENT
  Age: 31 Year
  Sex: Male

DRUGS (1)
  1. ACETAMINOPHEN. [Suspect]
     Active Substance: ACETAMINOPHEN
     Indication: ABDOMINAL PAIN
     Dosage: 500 MILLIGRAM (EVERY 4 TO 5 HOURS)
     Route: 065

REACTIONS (3)
  - Hepatorenal failure [Recovering/Resolving]
  - Toxicity to various agents [Unknown]
  - Posterior reversible encephalopathy syndrome [Recovering/Resolving]
